FAERS Safety Report 23501354 (Version 1)
Quarter: 2024Q1

REPORT INFORMATION
  Report Type: Report from Study
  Country: CA (occurrence: CA)
  Receive Date: 20240208
  Receipt Date: 20240208
  Transmission Date: 20240409
  Serious: Yes (Other)
  Sender: FDA-Public Use
  Company Number: CA-BAUSCH-BL-2024-001404

PATIENT
  Age: 60 Year
  Sex: Female

DRUGS (7)
  1. CONTRAVE [Suspect]
     Active Substance: BUPROPION HYDROCHLORIDE\NALTREXONE HYDROCHLORIDE
     Indication: Weight control
     Dosage: 90/8 MG
     Route: 048
     Dates: start: 202311, end: 2023
  2. CONTRAVE [Suspect]
     Active Substance: BUPROPION HYDROCHLORIDE\NALTREXONE HYDROCHLORIDE
     Dosage: 90/8 MG, 2 TABLETS QAM, 2 TABLETS QPM
     Route: 048
     Dates: start: 202312
  3. CONTRAVE [Suspect]
     Active Substance: BUPROPION HYDROCHLORIDE\NALTREXONE HYDROCHLORIDE
     Dosage: 90/8 MG, CUT DOWN DOSE TO ONE ORAL PILL EVERY 12 HOURS (1 TABLET QAM, 1 TABLET QPM)
     Route: 048
     Dates: start: 202401
  4. WELLBUTRIN [Interacting]
     Active Substance: BUPROPION HYDROCHLORIDE
     Indication: Depression
     Dosage: STARTED 5 YEARS AGO (300 MG,1 IN 1 D)
     Route: 048
     Dates: start: 2019, end: 2023
  5. WELLBUTRIN [Interacting]
     Active Substance: BUPROPION HYDROCHLORIDE
     Dosage: 150 MG,1 IN 1 D
     Route: 048
     Dates: start: 2023
  6. WELLBUTRIN [Interacting]
     Active Substance: BUPROPION HYDROCHLORIDE
     Dosage: STARTED 150MG OF WELLBUTRIN/TAKING REDUCED CONTRAVE DOSE AND WELLBUTRIN
     Route: 048
     Dates: start: 202401
  7. SYNTHROID [Concomitant]
     Active Substance: LEVOTHYROXINE SODIUM
     Indication: Hypothyroidism
     Dosage: UNK

REACTIONS (12)
  - Lower respiratory tract infection [Recovered/Resolved]
  - Food craving [Not Recovered/Not Resolved]
  - Tooth infection [Recovered/Resolved]
  - Gastroenteritis viral [Recovered/Resolved]
  - Depressed mood [Recovered/Resolved]
  - Nausea [Recovered/Resolved]
  - Contraindicated product administered [Unknown]
  - Labelled drug-drug interaction issue [Unknown]
  - Patient dissatisfaction with treatment [Unknown]
  - Labelled drug-food interaction issue [Unknown]
  - Contraindicated product prescribed [Unknown]
  - Intentional product use issue [Unknown]

NARRATIVE: CASE EVENT DATE: 20231101
